FAERS Safety Report 4295332-4 (Version None)
Quarter: 2004Q1

REPORT INFORMATION
  Report Type: 
  Country: None (occurrence: None)
  Receive Date: 20040216
  Receipt Date: 20030612
  Transmission Date: 20041129
  Serious: No
  Sender: FDA-Public Use
  Company Number: US-GLAXOSMITHKLINE-A0412425A

PATIENT
  Age: 38 Year
  Sex: Female

DRUGS (3)
  1. LAMICTAL [Suspect]
     Indication: BIPOLAR II DISORDER
     Dosage: 50MG TWICE PER DAY
     Route: 048
  2. NEURONTIN [Concomitant]
  3. AMBIEN [Concomitant]

REACTIONS (2)
  - NECK PAIN [None]
  - PAIN IN JAW [None]
